FAERS Safety Report 10959898 (Version 2)
Quarter: 2015Q2

REPORT INFORMATION
  Report Type: Spontaneous
  Country: US (occurrence: US)
  Receive Date: 20150327
  Receipt Date: 20150603
  Transmission Date: 20150821
  Serious: No
  Sender: FDA-Public Use
  Company Number: US-ASTRAZENECA-2015SE25965

PATIENT
  Sex: Female
  Weight: 61.2 kg

DRUGS (2)
  1. ARIMIDEX [Suspect]
     Active Substance: ANASTROZOLE
     Indication: BREAST CANCER
     Route: 048
     Dates: start: 20150316
  2. ARIMIDEX [Suspect]
     Active Substance: ANASTROZOLE
     Indication: BREAST CANCER
     Dosage: GENERIC
     Route: 048
     Dates: start: 201411, end: 20150315

REACTIONS (5)
  - Hot flush [Unknown]
  - Pain in extremity [Unknown]
  - Pain [Unknown]
  - Insomnia [Unknown]
  - Sleep disorder [Not Recovered/Not Resolved]
